FAERS Safety Report 6464157-3 (Version None)
Quarter: 2009Q4

REPORT INFORMATION
  Report Type: 
  Country: None (occurrence: None)
  Receive Date: 20091130
  Receipt Date: 20091130
  Transmission Date: 20100525
  Serious: Yes (Other)
  Sender: FDA-Public Use
  Company Number: None

PATIENT
  Age: 27 Year
  Sex: Female
  Weight: 49.8957 kg

DRUGS (2)
  1. LAMOTRIGINE [Suspect]
     Indication: EPILEPSY
     Dosage: 50MG 2X/DAY PO
     Route: 048
     Dates: start: 20091011, end: 20091126
  2. LAMOTRIGINE [Suspect]
     Indication: PARTIAL SEIZURES
     Dosage: 50MG 2X/DAY PO
     Route: 048
     Dates: start: 20091011, end: 20091126

REACTIONS (3)
  - COMPLEX PARTIAL SEIZURES [None]
  - CONDITION AGGRAVATED [None]
  - MIGRAINE [None]
